FAERS Safety Report 14594818 (Version 1)
Quarter: 2018Q1

REPORT INFORMATION
  Report Type: Spontaneous
  Country: US (occurrence: US)
  Receive Date: 20180302
  Receipt Date: 20180302
  Transmission Date: 20180509
  Serious: No
  Sender: FDA-Public Use
  Company Number: US-AKORN PHARMACEUTICALS-2017AKN00477

PATIENT
  Sex: Female
  Weight: 95.24 kg

DRUGS (3)
  1. NORPLANT [Concomitant]
     Active Substance: LEVONORGESTREL
  2. MOMETASONE [Concomitant]
     Active Substance: MOMETASONE
  3. MYORISAN [Suspect]
     Active Substance: ISOTRETINOIN
     Indication: ACNE
     Dosage: 100 MG, 1X/DAY
     Route: 048
     Dates: start: 201701, end: 20170307

REACTIONS (2)
  - Haemorrhoidal haemorrhage [Recovered/Resolved]
  - Haemorrhoids [Recovered/Resolved]
